FAERS Safety Report 8557353-2 (Version None)
Quarter: 2012Q3

REPORT INFORMATION
  Report Type: 
  Country: None (occurrence: None)
  Receive Date: 20120801
  Receipt Date: 20120726
  Transmission Date: 20120928
  Serious: Yes (Hospitalization)
  Sender: FDA-Public Use
  Company Number: JP-PFIZER INC-2012181951

PATIENT
  Age: 85 Year
  Sex: Male
  Weight: 57.7 kg

DRUGS (4)
  1. TEMSIROLIMUS [Suspect]
     Dosage: 25 MG, WEEKLY
     Route: 042
     Dates: start: 20110326, end: 20110909
  2. TEMSIROLIMUS [Suspect]
     Dosage: 25 MG, WEEKLY
     Route: 042
     Dates: start: 20110305
  3. TEMSIROLIMUS [Suspect]
     Dosage: 25 MG, WEEKLY
     Route: 042
     Dates: start: 20110924, end: 20111001
  4. TEMSIROLIMUS [Suspect]
     Indication: METASTATIC RENAL CELL CARCINOMA
     Dosage: 25 MG, WEEKLY
     Route: 042
     Dates: start: 20110226

REACTIONS (1)
  - RESPIRATORY TRACT INFLAMMATION [None]
